FAERS Safety Report 17865723 (Version 1)
Quarter: 2020Q2

REPORT INFORMATION
  Report Type: Spontaneous
  Country: FR (occurrence: FR)
  Receive Date: 20200605
  Receipt Date: 20200605
  Transmission Date: 20200714
  Serious: Yes (Hospitalization)
  Sender: FDA-Public Use
  Company Number: FR-MYLANLABS-2020M1054191

PATIENT
  Age: 81 Year
  Sex: Male
  Weight: 75 kg

DRUGS (7)
  1. RAMIPRIL. [Suspect]
     Active Substance: RAMIPRIL
     Indication: HYPERTENSION
     Dosage: 2.5 MILLIGRAM, QD
     Route: 048
     Dates: start: 20200221
  2. BRILIQUE [Suspect]
     Active Substance: TICAGRELOR
     Indication: PLATELET AGGREGATION
     Dosage: 180 MILLIGRAM, QD
     Route: 048
     Dates: start: 20200221
  3. PANTOPRAZOLE [Suspect]
     Active Substance: PANTOPRAZOLE
     Indication: PROPHYLAXIS AGAINST GASTROINTESTINAL ULCER
     Dosage: 20 MILLIGRAM, QD
     Route: 048
     Dates: start: 20200221
  4. ATORVASTATIN [Suspect]
     Active Substance: ATORVASTATIN
     Indication: DYSLIPIDAEMIA
     Dosage: 80 MILLIGRAM, QD
     Route: 048
     Dates: start: 20200221
  5. DECAPEPTYL (ACETATE) [Suspect]
     Active Substance: TRIPTORELIN ACETATE
     Indication: BENIGN PROSTATIC HYPERPLASIA
     Dosage: 1 DOSAGE FORM EVERY 6 MONTHS
     Route: 030
  6. BISOPROLOL [Suspect]
     Active Substance: BISOPROLOL
     Indication: ACUTE CORONARY SYNDROME
     Dosage: 2.5 MILLIGRAM, QD
     Route: 048
     Dates: start: 20200221
  7. KARDEGIC [Suspect]
     Active Substance: ASPIRIN DL-LYSINE
     Indication: PLATELET AGGREGATION
     Dosage: 1 DOSAGE FORM, QD
     Route: 048
     Dates: start: 20200221

REACTIONS (2)
  - Rectal haemorrhage [Recovering/Resolving]
  - Anaemia [Recovering/Resolving]

NARRATIVE: CASE EVENT DATE: 20200404
